FAERS Safety Report 12511578 (Version 1)
Quarter: 2016Q2

REPORT INFORMATION
  Report Type: Spontaneous
  Country: JP (occurrence: JP)
  Receive Date: 20160630
  Receipt Date: 20160630
  Transmission Date: 20160815
  Serious: Yes (Hospitalization)
  Sender: FDA-Public Use
  Company Number: JP-VALIDUS PHARMACEUTICALS LLC-JP-2016VAL002125

PATIENT
  Age: 39 Year
  Sex: Female

DRUGS (1)
  1. CARBAMAZEPINE. [Suspect]
     Active Substance: CARBAMAZEPINE
     Indication: EPILEPSY
     Dosage: UNK

REACTIONS (10)
  - Pyrexia [Unknown]
  - Rash erythematous [Recovered/Resolved]
  - Hypogammaglobulinaemia [Unknown]
  - Blister [Recovered/Resolved]
  - Lymphadenopathy [Unknown]
  - Leukocytosis [Unknown]
  - Dyshidrotic eczema [Recovered/Resolved]
  - Eosinophilia [Unknown]
  - Drug reaction with eosinophilia and systemic symptoms [Recovered/Resolved]
  - Hepatic function abnormal [Unknown]
